FAERS Safety Report 7275775-7 (Version None)
Quarter: 2011Q1

REPORT INFORMATION
  Report Type: 
  Country: None (occurrence: None)
  Receive Date: 20110124
  Receipt Date: 20101130
  Transmission Date: 20110831
  Serious: Yes (Other)
  Sender: FDA-Public Use
  Company Number: OMX-2011-00004

PATIENT

DRUGS (1)
  1. EVICEL [Suspect]
     Indication: FACE LIFT

REACTIONS (5)
  - HAEMATOMA [None]
  - INTRA-ABDOMINAL HAEMATOMA [None]
  - SKIN DISCOLOURATION [None]
  - OFF LABEL USE [None]
  - POST PROCEDURAL COMPLICATION [None]
